FAERS Safety Report 5523687-9 (Version None)
Quarter: 2007Q4

REPORT INFORMATION
  Report Type: 
  Country: None (occurrence: None)
  Receive Date: 20071121
  Receipt Date: 20071115
  Transmission Date: 20080405
  Serious: Yes (Hospitalization, Other)
  Sender: FDA-Public Use
  Company Number: US-ABBOTT-07P-163-0425017-00

PATIENT
  Sex: Male
  Weight: 81.72 kg

DRUGS (3)
  1. HUMIRA [Suspect]
     Indication: CROHN'S DISEASE
     Route: 058
     Dates: start: 20060101
  2. HUMIRA [Suspect]
     Dosage: ONE DOSE
     Dates: start: 20060101, end: 20060101
  3. HUMIRA [Suspect]
     Dosage: STARTER DOSE
     Dates: start: 20061101, end: 20061101

REACTIONS (4)
  - GUN SHOT WOUND [None]
  - INJECTION SITE NODULE [None]
  - INJECTION SITE PRURITUS [None]
  - INJECTION SITE REACTION [None]
